FAERS Safety Report 8229189-3 (Version None)
Quarter: 2012Q1

REPORT INFORMATION
  Report Type: 
  Country: None (occurrence: None)
  Receive Date: 20120322
  Receipt Date: 20120319
  Transmission Date: 20120608
  Serious: Yes (Other)
  Sender: FDA-Public Use
  Company Number: US-PFIZER INC-2012072353

PATIENT
  Sex: Male

DRUGS (3)
  1. LIPITOR [Suspect]
     Dosage: UNK
  2. VIAGRA [Suspect]
     Dosage: UNK
  3. XALATAN [Suspect]
     Dosage: UNK

REACTIONS (3)
  - KNEE ARTHROPLASTY [None]
  - CELLULITIS [None]
  - RHEUMATOID ARTHRITIS [None]
